FAERS Safety Report 4273183-4 (Version None)
Quarter: 2004Q1

REPORT INFORMATION
  Report Type: 
  Country: None (occurrence: None)
  Receive Date: 20040116
  Receipt Date: 20031023
  Transmission Date: 20041129
  Serious: Yes (Hospitalization, Other)
  Sender: FDA-Public Use
  Company Number: CA-BRISTOL-MYERS SQUIBB COMPANY-12419172

PATIENT
  Age: 57 Year
  Sex: Male

DRUGS (6)
  1. ATAZANAVIR [Suspect]
     Indication: HIV INFECTION
     Dosage: INTERRUPTED ON 21-OCT-2003 (LAST TAKEN ON 21-OCT-2003), RESUMED ON 28-OCT-2003.
     Route: 048
     Dates: start: 20030130
  2. TRIZIVIR [Concomitant]
     Dosage: DOSAGE FORM = 1 TABLET, INTERRUPTED ON 21-OCT-2003, RESUMED ON 28-OCT-2003
     Dates: start: 20021211
  3. SEPTRA [Concomitant]
     Dosage: DOSAGE FORM = 1 TABLET, INTERRUPTED, RESUMED ON 28-OCT-2003
  4. TENORMIN [Concomitant]
     Dosage: INTERRUPTED, RESTARTED ON 28-OCT-2003
  5. NIACIN [Concomitant]
     Dosage: INTERRUPTED, RESUMED ON 28-OCT-2003
  6. SERAX [Concomitant]
     Dosage: INTERRUPTED, RESUMED ON 28-OCT-2003

REACTIONS (4)
  - BILIRUBIN CONJUGATED INCREASED [None]
  - BLOOD BILIRUBIN INCREASED [None]
  - BLOOD GLUCOSE INCREASED [None]
  - CHOLECYSTITIS [None]
